FAERS Safety Report 7128711-8 (Version None)
Quarter: 2010Q4

REPORT INFORMATION
  Report Type: 
  Country: None (occurrence: None)
  Receive Date: 20101130
  Receipt Date: 20101118
  Transmission Date: 20110411
  Serious: Yes (Hospitalization)
  Sender: FDA-Public Use
  Company Number: FR-ASTRAZENECA-2010SE55624

PATIENT
  Age: 30392 Day
  Sex: Female

DRUGS (7)
  1. PULMICORT [Suspect]
     Route: 055
  2. CORDARONE [Suspect]
     Route: 048
     Dates: start: 20090401, end: 20101031
  3. PREVISCAN [Suspect]
     Route: 048
  4. TRIATEC [Suspect]
     Route: 048
  5. LEVOTHYROX [Suspect]
     Route: 048
  6. LASILIX [Suspect]
     Route: 048
     Dates: start: 20090401, end: 20101015
  7. LASILIX [Suspect]
     Route: 048
     Dates: start: 20101015, end: 20101031

REACTIONS (14)
  - ARRHYTHMIA [None]
  - ATRIAL FIBRILLATION [None]
  - BLOOD LACTATE DEHYDROGENASE INCREASED [None]
  - BUNDLE BRANCH BLOCK LEFT [None]
  - CHRONIC OBSTRUCTIVE PULMONARY DISEASE [None]
  - FIBRIN D DIMER INCREASED [None]
  - HYPOXIA [None]
  - INTERNATIONAL NORMALISED RATIO INCREASED [None]
  - INTERSTITIAL LUNG DISEASE [None]
  - LOSS OF CONSCIOUSNESS [None]
  - LYMPHOPENIA [None]
  - NEUTROPHIL COUNT INCREASED [None]
  - NORMOCHROMIC NORMOCYTIC ANAEMIA [None]
  - RESPIRATORY FAILURE [None]
